FAERS Safety Report 6373396-1 (Version None)
Quarter: 2009Q3

REPORT INFORMATION
  Report Type: 
  Country: None (occurrence: None)
  Receive Date: 20090924
  Receipt Date: 20090316
  Transmission Date: 20100115
  Serious: No
  Sender: FDA-Public Use
  Company Number: US-ASTRAZENECA-2009UW06704

PATIENT
  Age: 56 Year
  Sex: Female
  Weight: 62.6 kg

DRUGS (6)
  1. SEROQUEL [Suspect]
     Route: 048
     Dates: start: 20090101
  2. TRAZODONE HCL [Concomitant]
  3. CYMBALTA [Concomitant]
  4. ESTRATEST [Concomitant]
  5. ABILIFY [Concomitant]
  6. LYRICA [Concomitant]

REACTIONS (2)
  - ILL-DEFINED DISORDER [None]
  - MEMORY IMPAIRMENT [None]
